FAERS Safety Report 4867199-4 (Version None)
Quarter: 2005Q4

REPORT INFORMATION
  Report Type: 
  Country: None (occurrence: None)
  Receive Date: 20051227
  Receipt Date: 20051227
  Transmission Date: 20060501
  Serious: Yes (Hospitalization)
  Sender: FDA-Public Use
  Company Number: None

PATIENT
  Age: 62 Year
  Sex: Male
  Weight: 79.8 kg

DRUGS (6)
  1. CEPHALEXIN [Suspect]
  2. LISINOPRIL [Concomitant]
  3. SIMVASTATIN [Concomitant]
  4. BETAMETHASONE VALERATE [Concomitant]
  5. CLOTRIMAZOLE [Concomitant]
  6. BACITRACIN ZINC-POLYMYXIN B SULFATE [Concomitant]

REACTIONS (2)
  - ERYTHEMA [None]
  - RASH [None]
